FAERS Safety Report 8550260-0 (Version None)
Quarter: 2012Q3

REPORT INFORMATION
  Report Type: 
  Country: None (occurrence: None)
  Receive Date: 20120730
  Receipt Date: 20120723
  Transmission Date: 20120928
  Serious: Yes (Other)
  Sender: FDA-Public Use
  Company Number: PHHY2012MX064603

PATIENT
  Sex: Female

DRUGS (6)
  1. ACETAMINOPHEN [Concomitant]
     Indication: MYALGIA
     Dosage: ONE TABLET
     Dates: start: 20100101
  2. ZOLEDRONOC ACID [Suspect]
     Indication: OSTEOPOROSIS
     Dosage: 5 MG/ 100 ML ONCE BY YEAR
     Route: 042
  3. DIOVAN [Concomitant]
     Indication: HYPERTENSION
     Dosage: UNK UKN, UNK
  4. ACETAMINOPHEN [Concomitant]
     Dosage: TWO TABLETS
  5. MIRAPEX [Concomitant]
     Indication: BLOOD DISORDER
     Dosage: ONE TABLET
  6. ASPIRIN [Concomitant]
     Indication: CARDIOVASCULAR DISORDER
     Dosage: UNK UKN, QD

REACTIONS (1)
  - SPEECH DISORDER [None]
